FAERS Safety Report 11374841 (Version 1)
Quarter: 2015Q3

REPORT INFORMATION
  Report Type: Spontaneous
  Country: US (occurrence: None)
  Receive Date: 20150812
  Receipt Date: 20150812
  Transmission Date: 20151125
  Serious: No
  Sender: FDA-Public Use
  Company Number: None

PATIENT
  Age: 57 Year
  Sex: Female

DRUGS (1)
  1. REBIF [Suspect]
     Active Substance: INTERFERON BETA-1A
     Indication: MULTIPLE SCLEROSIS
     Dosage: 44MCG  3 TIMES WEEKLY  SUBCUTANEOUS
     Route: 058

REACTIONS (3)
  - Hot flush [None]
  - Muscle spasms [None]
  - Myalgia [None]

NARRATIVE: CASE EVENT DATE: 20150202
